FAERS Safety Report 7743400-4 (Version None)
Quarter: 2011Q3

REPORT INFORMATION
  Report Type: 
  Country: None (occurrence: None)
  Receive Date: 20110912
  Receipt Date: 20110831
  Transmission Date: 20111222
  Serious: Yes (Other)
  Sender: FDA-Public Use
  Company Number: PHFR2011GB05026

PATIENT
  Sex: Female

DRUGS (1)
  1. VOLTAREN-XR [Suspect]
     Dosage: UNK UKN, UNK
     Route: 048

REACTIONS (2)
  - WHEEZING [None]
  - ABDOMINAL PAIN UPPER [None]
